FAERS Safety Report 9530212 (Version 1)
Quarter: 2013Q3

REPORT INFORMATION
  Report Type: Spontaneous
  Country: FR (occurrence: FR)
  Receive Date: 20130917
  Receipt Date: 20130917
  Transmission Date: 20140515
  Serious: Yes (Other)
  Sender: FDA-Public Use
  Company Number: FR-B.I. PHARMACEUTICALS,INC./RIDGEFIELD-2013-FF-02288FF

PATIENT
  Age: 62 Year
  Sex: Female

DRUGS (7)
  1. SIFROL [Suspect]
     Indication: PARKINSON^S DISEASE
     Dosage: 0.54 MG
     Route: 048
     Dates: start: 200808, end: 200811
  2. SIFROL [Suspect]
     Dosage: 0.81 MG
     Route: 048
     Dates: start: 200811, end: 2010
  3. SIFROL [Suspect]
     Dosage: 0.135 MG
     Route: 048
     Dates: start: 2010, end: 201101
  4. SIFROL [Suspect]
     Dosage: 0.7 MG
     Route: 048
     Dates: start: 201101, end: 201104
  5. SIFROL [Suspect]
     Dosage: 0.875 MG
     Route: 048
     Dates: start: 201104, end: 201203
  6. SIFROL [Suspect]
     Dosage: 1.05 MG
     Route: 048
     Dates: start: 201203, end: 201302
  7. SIFROL [Suspect]
     Dosage: 0.7 MG
     Route: 048
     Dates: start: 201302

REACTIONS (4)
  - Impulse-control disorder [Not Recovered/Not Resolved]
  - Dependence [Not Recovered/Not Resolved]
  - Eating disorder [Not Recovered/Not Resolved]
  - Hypersexuality [Not Recovered/Not Resolved]
